FAERS Safety Report 23148099 (Version 2)
Quarter: 2023Q4

REPORT INFORMATION
  Report Type: Report from Study
  Country: GB (occurrence: GB)
  Receive Date: 20231106
  Receipt Date: 20231117
  Transmission Date: 20240109
  Serious: Yes (Other)
  Sender: FDA-Public Use
  Company Number: GB-002147023-NVSC2023GB233817

PATIENT
  Sex: Male

DRUGS (1)
  1. COSENTYX [Suspect]
     Active Substance: SECUKINUMAB
     Indication: Psoriatic arthropathy
     Dosage: 300 MG, QMO
     Route: 058

REACTIONS (3)
  - Gait disturbance [Not Recovered/Not Resolved]
  - Arthropathy [Not Recovered/Not Resolved]
  - Ankle deformity [Unknown]
